FAERS Safety Report 7214853-5 (Version None)
Quarter: 2011Q1

REPORT INFORMATION
  Report Type: 
  Country: None (occurrence: None)
  Receive Date: 20110107
  Receipt Date: 20100406
  Transmission Date: 20110831
  Serious: No
  Sender: FDA-Public Use
  Company Number: A0853730A

PATIENT
  Age: 56 Year
  Sex: Female

DRUGS (11)
  1. ZANTAC [Concomitant]
  2. POTASSIUM [Concomitant]
  3. SOTALOL [Concomitant]
  4. PERCOCET [Concomitant]
  5. LOVAZA [Suspect]
     Dosage: 4TAB PER DAY
     Route: 048
     Dates: start: 20100310, end: 20100401
  6. LISINOPRIL [Concomitant]
  7. MULTI-VITAMIN [Concomitant]
  8. COUMADIN [Concomitant]
  9. NEURONTIN [Concomitant]
  10. PRAVASTATIN [Concomitant]
  11. INSULIN [Concomitant]

REACTIONS (5)
  - PYREXIA [None]
  - ABDOMINAL DISCOMFORT [None]
  - COAGULATION TIME ABNORMAL [None]
  - INFLUENZA LIKE ILLNESS [None]
  - PAIN [None]
